FAERS Safety Report 14338580 (Version 1)
Quarter: 2017Q4

REPORT INFORMATION
  Report Type: Spontaneous
  Country: CA (occurrence: CA)
  Receive Date: 20171229
  Receipt Date: 20171229
  Transmission Date: 20180321
  Serious: Yes (Life-Threatening, Hospitalization)
  Sender: FDA-Public Use
  Company Number: PHHY2017CA196457

PATIENT
  Age: 41 Year
  Sex: Female

DRUGS (6)
  1. NOVORAPID [Suspect]
     Active Substance: INSULIN ASPART
     Indication: PRODUCT USED FOR UNKNOWN INDICATION
     Route: 058
  2. GLUCOSE [Suspect]
     Active Substance: DEXTROSE
     Dosage: 2000 ML, UNK (10% GLUCOSE)
     Route: 042
  3. CLONAZEPAM. [Suspect]
     Active Substance: CLONAZEPAM
     Indication: PRODUCT USED FOR UNKNOWN INDICATION
     Dosage: 2 MG, UNK
     Route: 065
  4. GLUCOSE [Suspect]
     Active Substance: DEXTROSE
     Dosage: 12 DF, UNK (12 AMPOULES OF 50% GLUCOSE)
     Route: 042
  5. GLUCOSE [Suspect]
     Active Substance: DEXTROSE
     Indication: PRODUCT USED FOR UNKNOWN INDICATION
     Dosage: 50 ML, UNK (50% GLUCOSE) (D50W)
     Route: 042
  6. ZOPICLONE [Suspect]
     Active Substance: ZOPICLONE
     Indication: PRODUCT USED FOR UNKNOWN INDICATION
     Dosage: 45 MG, UNK
     Route: 065

REACTIONS (8)
  - Oedema peripheral [Unknown]
  - Suicide attempt [Unknown]
  - Hypoglycaemia [Unknown]
  - Blood potassium decreased [Unknown]
  - Ataxia [Unknown]
  - Lethargy [Unknown]
  - Blood pressure decreased [Unknown]
  - Intentional overdose [Unknown]
